FAERS Safety Report 7800787-1 (Version None)
Quarter: 2011Q4

REPORT INFORMATION
  Report Type: 
  Country: None (occurrence: None)
  Receive Date: 20111006
  Receipt Date: 20110930
  Transmission Date: 20120403
  Serious: Yes (Hospitalization, Other)
  Sender: FDA-Public Use
  Company Number: JP-B.I. PHARMACEUTICALS,INC./RIDGEFIELD-2011-BP-16286NB

PATIENT
  Sex: Male

DRUGS (8)
  1. MUCOSTA / REBAMIPIDE [Concomitant]
     Dosage: 200 MG
     Route: 048
  2. FAMOTIDINE [Concomitant]
     Dosage: 20 MG
     Route: 048
  3. TOLTERODINE TARTRATE [Concomitant]
     Dosage: 4 MG
     Route: 048
     Dates: start: 20110201
  4. PRADAXA [Suspect]
     Indication: ATRIAL FIBRILLATION
     Dosage: 220 MG
     Route: 048
     Dates: start: 20110318, end: 20110514
  5. CELECOXIB [Suspect]
     Dosage: 200 MG
     Route: 048
     Dates: start: 20100324
  6. URIEF / SILODOSIN [Concomitant]
     Dosage: 8 MG
     Route: 048
     Dates: start: 20110201
  7. LIVALO [Concomitant]
     Dosage: 1 MG
     Route: 048
     Dates: start: 20100624
  8. AVOLVE / DUTASTERIDE [Concomitant]
     Dosage: 0.5 MG
     Route: 048
     Dates: start: 20110201

REACTIONS (2)
  - CEREBRAL INFARCTION [None]
  - DRUG EFFECT DECREASED [None]
